FAERS Safety Report 10624792 (Version 2)
Quarter: 2014Q4

REPORT INFORMATION
  Report Type: Spontaneous
  Country: IT (occurrence: IT)
  Receive Date: 20141204
  Receipt Date: 20141205
  Transmission Date: 20150529
  Serious: Yes (Hospitalization)
  Sender: FDA-Public Use
  Company Number: IT-ROCHE-1500384

PATIENT
  Age: 72 Year
  Sex: Female

DRUGS (8)
  1. FLUIMICIL [Concomitant]
     Dosage: 600 MG FIZZY TAB
     Route: 048
     Dates: start: 20141017, end: 20141020
  2. TRITTICO [Concomitant]
     Active Substance: TRAZODONE HYDROCHLORIDE
     Dosage: 150 MG SLOW RELEASE TAB
     Route: 048
  3. VALIUM [Suspect]
     Active Substance: DIAZEPAM
     Indication: AGITATION
     Dosage: 10 MG/2ML INJECTABLE SOLUTION
     Route: 030
     Dates: start: 20141020, end: 20141020
  4. TALOFEN [Suspect]
     Active Substance: PROMAZINE HYDROCHLORIDE
     Dosage: 25 MG/ML INJECTABLE SOLUTION
     Route: 030
     Dates: start: 20140820, end: 20141020
  5. TALOFEN [Suspect]
     Active Substance: PROMAZINE HYDROCHLORIDE
     Indication: AGITATION
     Dosage: 4 G/100 ML ORAL GTT SOLUTION
     Route: 048
     Dates: start: 20140820, end: 20141020
  6. PSYLLOGEL [Concomitant]
     Route: 048
  7. LEVOXACIN [Concomitant]
     Active Substance: LEVOFLOXACIN
     Dosage: 500 MG COATED TAB
     Route: 048
     Dates: start: 20141017, end: 20141020
  8. LOBIVON [Concomitant]
     Active Substance: NEBIVOLOL HYDROCHLORIDE
     Indication: HYPERTENSION
     Dosage: 5 MG TAB
     Route: 048

REACTIONS (2)
  - Hypertonia [Recovered/Resolved]
  - Sopor [Recovered/Resolved]

NARRATIVE: CASE EVENT DATE: 20141020
